FAERS Safety Report 5397632-3 (Version None)
Quarter: 2007Q3

REPORT INFORMATION
  Report Type: 
  Country: None (occurrence: None)
  Receive Date: 20070723
  Receipt Date: 20070723
  Transmission Date: 20080115
  Serious: Yes (Disabling)
  Sender: FDA-Public Use
  Company Number: None

PATIENT
  Age: 51 Year
  Sex: Female
  Weight: 54.4316 kg

DRUGS (1)
  1. FOSAMAX [Suspect]
     Indication: OSTEOPENIA
     Dosage: 70 MG ONCE A WEEK PO
     Route: 048
     Dates: start: 20070512, end: 20070723

REACTIONS (6)
  - ARTHRALGIA [None]
  - BURSITIS [None]
  - MUSCULAR WEAKNESS [None]
  - MYALGIA [None]
  - PERIARTHRITIS [None]
  - TENDONITIS [None]
